FAERS Safety Report 5951904-X (Version None)
Quarter: 2008Q4

REPORT INFORMATION
  Report Type: 
  Country: None (occurrence: None)
  Receive Date: 20081022
  Receipt Date: 20080705
  Transmission Date: 20090506
  Serious: No
  Sender: FDA-Public Use
  Company Number: ALL1-2008-01942

PATIENT
  Age: 50 Year
  Sex: Female
  Weight: 65.8 kg

DRUGS (7)
  1. VYVANSE [Suspect]
     Indication: ATTENTION DEFICIT/HYPERACTIVITY DISORDER
     Dosage: 30 MG, 1X/DAY:QD, ORAL ; 30 MG, 1X/DAY:QD, ORAL
     Route: 048
     Dates: start: 20080601, end: 20080601
  2. VYVANSE [Suspect]
     Indication: ATTENTION DEFICIT/HYPERACTIVITY DISORDER
     Dosage: 30 MG, 1X/DAY:QD, ORAL ; 30 MG, 1X/DAY:QD, ORAL
     Route: 048
     Dates: start: 20080705
  3. EFFEXOR /01233801/ (VENLAFAXINE) [Concomitant]
  4. XANAX [Concomitant]
  5. GEODON /01487002/ (ZIPRASIDONE HYDROCHLORIDE) [Concomitant]
  6. HORMONES NOS [Concomitant]
  7. AVALIDE [Concomitant]

REACTIONS (3)
  - FEELING JITTERY [None]
  - HYPERHIDROSIS [None]
  - NAUSEA [None]
